FAERS Safety Report 4716568-1 (Version None)
Quarter: 2005Q3

REPORT INFORMATION
  Report Type: 
  Country: None (occurrence: None)
  Receive Date: 20050714
  Receipt Date: 20050705
  Transmission Date: 20060218
  Serious: Yes (Death, Hospitalization)
  Sender: FDA-Public Use
  Company Number: 2005BH000625

PATIENT
  Age: 67 Year
  Sex: Female

DRUGS (15)
  1. EXTRANEAL [Suspect]
     Indication: RENAL FAILURE CHRONIC
     Dosage: 2000 ML; EVERY DAY; IP
     Route: 033
     Dates: start: 20031001, end: 20050301
  2. DIANEAL [Concomitant]
  3. SIGMART [Concomitant]
  4. CALSAN [Concomitant]
  5. LENDORMIN [Concomitant]
  6. ALOSENN [Concomitant]
  7. PURSENNIDE [Concomitant]
  8. GASTER D [Concomitant]
  9. FLONASE [Concomitant]
  10. ALLEGRA [Concomitant]
  11. KETOTIFEN FUMARATE [Concomitant]
  12. CARNACULIN [Concomitant]
  13. EURAX H [Concomitant]
  14. KETOPROFEN [Concomitant]
  15. ESPO [Concomitant]

REACTIONS (3)
  - EXTREMITY NECROSIS [None]
  - SEPSIS [None]
  - WOUND INFECTION STAPHYLOCOCCAL [None]
